FAERS Safety Report 17617768 (Version 1)
Quarter: 2020Q2

REPORT INFORMATION
  Report Type: Spontaneous
  Country: RU (occurrence: RU)
  Receive Date: 20200402
  Receipt Date: 20200402
  Transmission Date: 20200713
  Serious: Yes (Life-Threatening, Other)
  Sender: FDA-Public Use
  Company Number: RU-TEVA-2020-RU-1217829

PATIENT
  Sex: Male
  Weight: 98 kg

DRUGS (1)
  1. SUMAMED [Suspect]
     Active Substance: AZITHROMYCIN ANHYDROUS
     Indication: SELF-MEDICATION
     Dosage: 1 TABLET RECEPTION IN MAY 2019
     Route: 048
     Dates: start: 201905, end: 201905

REACTIONS (5)
  - Pharyngeal swelling [Recovered/Resolved]
  - Anamnestic reaction [Recovered/Resolved]
  - Asphyxia [Recovered/Resolved]
  - Angioedema [Recovered/Resolved]
  - Dyspnoea [Recovered/Resolved]
